FAERS Safety Report 19774012 (Version 1)
Quarter: 2021Q3

REPORT INFORMATION
  Report Type: Report from Study
  Country: US (occurrence: US)
  Receive Date: 20210831
  Receipt Date: 20210831
  Transmission Date: 20211014
  Serious: Yes (Hospitalization, Other)
  Sender: FDA-Public Use
  Company Number: US-SEATTLE GENETICS-2021SGN04437

PATIENT
  Age: 74 Year
  Sex: Female

DRUGS (2)
  1. TUCATINIB [Suspect]
     Active Substance: TUCATINIB
     Dosage: UNK
     Route: 065
     Dates: end: 20210815
  2. TUCATINIB [Suspect]
     Active Substance: TUCATINIB
     Dosage: UNK
     Route: 065
     Dates: start: 20210819

REACTIONS (6)
  - Urinary tract infection [Unknown]
  - Neoplasm progression [Unknown]
  - Diarrhoea [Unknown]
  - Brain injury [Unknown]
  - Ureteric obstruction [Unknown]
  - Urethral stent insertion [Unknown]

NARRATIVE: CASE EVENT DATE: 20210815
